FAERS Safety Report 19356522 (Version 2)
Quarter: 2021Q2

REPORT INFORMATION
  Report Type: Report from Study
  Country: KR (occurrence: KR)
  Receive Date: 20210601
  Receipt Date: 20210605
  Transmission Date: 20210717
  Serious: Yes (Hospitalization, Other)
  Sender: FDA-Public Use
  Company Number: KR-AMGEN-KORCT2021082236

PATIENT
  Age: 65 Year
  Sex: Female

DRUGS (100)
  1. APREPITANT. [Concomitant]
     Active Substance: APREPITANT
     Dosage: 125 MILLIGRAM, QD
     Dates: start: 20181025, end: 20181026
  2. APREPITANT. [Concomitant]
     Active Substance: APREPITANT
     Dosage: 125 MILLIGRAM, QD
     Dates: start: 20181030, end: 20181030
  3. APREPITANT. [Concomitant]
     Active Substance: APREPITANT
     Dosage: 125 MILLIGRAM, QD
     Dates: start: 20181120, end: 20181120
  4. CEFPODOXIME [Concomitant]
     Active Substance: CEFPODOXIME
     Indication: PRODUCT USED FOR UNKNOWN INDICATION
     Dosage: 200 MILLIGRAM, QD
     Dates: start: 20181113, end: 20181127
  5. CHLORHEXIDINE [Concomitant]
     Active Substance: CHLORHEXIDINE
     Dosage: UNK UNK, QD
     Dates: start: 20181113, end: 20181116
  6. INFLUENZA [Concomitant]
     Active Substance: INFLUENZA VIRUS VACCINE
     Indication: PRODUCT USED FOR UNKNOWN INDICATION
     Dosage: 0.5 UNK, QD
     Dates: start: 20181029, end: 20181029
  7. KETOROLAC [Concomitant]
     Active Substance: KETOROLAC TROMETHAMINE
     Indication: PRODUCT USED FOR UNKNOWN INDICATION
     Dosage: 30 MILLIGRAM, QD
     Dates: start: 20190115, end: 20190115
  8. LEVOCETIRIZINE [Concomitant]
     Active Substance: LEVOCETIRIZINE
     Indication: PRODUCT USED FOR UNKNOWN INDICATION
     Dosage: 5 MILLIGRAM, QD
     Dates: start: 20190108, end: 20190214
  9. PACLITAXEL. [Concomitant]
     Active Substance: PACLITAXEL
     Dosage: 100 MILLIGRAM, QD
     Dates: start: 20181002, end: 20181002
  10. PACLITAXEL. [Concomitant]
     Active Substance: PACLITAXEL
     Dosage: 100 MILLIGRAM, QD
     Dates: start: 20181030, end: 20181030
  11. PARACETAMOL [Concomitant]
     Active Substance: ACETAMINOPHEN
     Dosage: 650 MILLIGRAM, QD
     Dates: start: 20181218, end: 20181221
  12. RAMUCIRUMAB [Concomitant]
     Active Substance: RAMUCIRUMAB
     Dosage: 388 MILLIGRAM, QD
     Dates: start: 20181120, end: 20181120
  13. ZOLPIDEM [Concomitant]
     Active Substance: ZOLPIDEM TARTRATE
     Indication: PRODUCT USED FOR UNKNOWN INDICATION
     Dosage: 10 MILLIGRAM, QD
     Dates: start: 20180511, end: 20190218
  14. FILGRASTIM [Suspect]
     Active Substance: FILGRASTIM
     Indication: PRODUCT USED FOR UNKNOWN INDICATION
     Dosage: UNK, QD (300)
     Route: 065
     Dates: start: 20181228, end: 20181228
  15. TAPENTADOL [Concomitant]
     Active Substance: TAPENTADOL
     Indication: PRODUCT USED FOR UNKNOWN INDICATION
     Dosage: 50 MILLIGRAM, QD
     Dates: start: 20190122
  16. METOCLOPRAMIDE. [Concomitant]
     Active Substance: METOCLOPRAMIDE
     Dosage: 10 MILLIGRAM, QD
     Dates: start: 20190208, end: 20190208
  17. MORPHINE [Concomitant]
     Active Substance: MORPHINE
     Indication: PRODUCT USED FOR UNKNOWN INDICATION
     Dosage: 5 MILLIGRAM, QD
     Dates: start: 20190212, end: 20190212
  18. PARACETAMOL [Concomitant]
     Active Substance: ACETAMINOPHEN
     Dosage: 650 MILLIGRAM, QD
     Dates: start: 20181120, end: 20181124
  19. RAMUCIRUMAB [Concomitant]
     Active Substance: RAMUCIRUMAB
     Indication: PRODUCT USED FOR UNKNOWN INDICATION
     Dosage: 388 MILLIGRAM, QD
     Dates: start: 20180918, end: 20180918
  20. ALBUMIN [Concomitant]
     Active Substance: ALBUMIN HUMAN
     Indication: PRODUCT USED FOR UNKNOWN INDICATION
     Dosage: 100 UNK, QD
     Dates: start: 20190206, end: 20190207
  21. AMOXICILLIN. [Concomitant]
     Active Substance: AMOXICILLIN
     Indication: PRODUCT USED FOR UNKNOWN INDICATION
     Dosage: 375 MILLIGRAM, QD
     Dates: start: 20181010, end: 20181014
  22. APREPITANT. [Concomitant]
     Active Substance: APREPITANT
     Dosage: 80 MILLIGRAM, QD
     Dates: start: 20181219, end: 20181220
  23. APREPITANT. [Concomitant]
     Active Substance: APREPITANT
     Dosage: 125 MILLIGRAM, QD
     Dates: start: 20181218, end: 20181218
  24. BISACODYL. [Concomitant]
     Active Substance: BISACODYL
     Dosage: 10 MILLIGRAM, QD
     Dates: start: 20181113
  25. DEXAMETHASONE. [Concomitant]
     Active Substance: DEXAMETHASONE
     Dosage: UNK
     Dates: start: 20181218, end: 20181228
  26. LACTULOSE. [Concomitant]
     Active Substance: LACTULOSE
     Dosage: 30 UNK, QD
     Dates: start: 20190122, end: 20190122
  27. MORPHINE [Concomitant]
     Active Substance: MORPHINE
     Dosage: 5 MILLIGRAM, QD
     Dates: start: 20190215, end: 20190215
  28. OXYCODONE/NALOXONE RATIOPHARM [Concomitant]
     Indication: PRODUCT USED FOR UNKNOWN INDICATION
     Dosage: 1 DOSAGE FORM, QD
     Dates: start: 20181002, end: 20181231
  29. OXYCODONE/NALOXONE RATIOPHARM [Concomitant]
     Dosage: 1 DOSAGE FORM, QD
     Dates: start: 20190123, end: 20190213
  30. PACLITAXEL. [Concomitant]
     Active Substance: PACLITAXEL
     Indication: PRODUCT USED FOR UNKNOWN INDICATION
     Dosage: 100 MILLIGRAM, QD
     Dates: start: 20180918, end: 20180918
  31. PEMBROLIZUMAB. [Concomitant]
     Active Substance: PEMBROLIZUMAB
     Indication: PRODUCT USED FOR UNKNOWN INDICATION
     Dosage: 200 MILLIGRAM, QD
     Dates: start: 20181231, end: 20181231
  32. PEMBROLIZUMAB. [Concomitant]
     Active Substance: PEMBROLIZUMAB
     Dosage: 200 MILLIGRAM, QD
     Dates: start: 20190122, end: 20190122
  33. ALPRAZOLAM. [Concomitant]
     Active Substance: ALPRAZOLAM
     Dosage: 0.25 MILLIGRAM, QD
     Dates: start: 20190208, end: 20190218
  34. APREPITANT. [Concomitant]
     Active Substance: APREPITANT
     Dosage: 80 MILLIGRAM, QD
     Dates: start: 20190131, end: 20190201
  35. BISACODYL. [Concomitant]
     Active Substance: BISACODYL
     Indication: PRODUCT USED FOR UNKNOWN INDICATION
     Dosage: 5 MILLIGRAM, QD
     Dates: start: 20181016, end: 20181112
  36. DEXAMETHASONE. [Concomitant]
     Active Substance: DEXAMETHASONE
     Indication: PRODUCT USED FOR UNKNOWN INDICATION
     Dosage: UNK
     Dates: start: 20181030, end: 20181204
  37. OXYCODONE/NALOXONE RATIOPHARM [Concomitant]
     Dosage: 1 DOSAGE FORM, QD
     Dates: start: 20190101, end: 20190213
  38. PEMBROLIZUMAB. [Concomitant]
     Active Substance: PEMBROLIZUMAB
     Dosage: 200 MILLIGRAM, QD
     Dates: start: 20190215, end: 20190215
  39. POTASSIUM PHOSPHATES [Concomitant]
     Active Substance: POTASSIUM PHOSPHATE, DIBASIC\POTASSIUM PHOSPHATE, MONOBASIC
     Indication: PRODUCT USED FOR UNKNOWN INDICATION
     Dosage: 10 UNK, QD
     Dates: start: 20190212, end: 20190212
  40. PRUCALOPRIDE [Concomitant]
     Active Substance: PRUCALOPRIDE
     Indication: PRODUCT USED FOR UNKNOWN INDICATION
     Dosage: 2 MILLIGRAM, QD
     Dates: start: 20190122, end: 20190206
  41. RAMUCIRUMAB [Concomitant]
     Active Substance: RAMUCIRUMAB
     Dosage: 388 MILLIGRAM, QD
     Dates: start: 20181016, end: 20181016
  42. RAMUCIRUMAB [Concomitant]
     Active Substance: RAMUCIRUMAB
     Dosage: 388 MILLIGRAM, QD
     Dates: start: 20181204, end: 20181204
  43. SPIRONOLACTONE. [Concomitant]
     Active Substance: SPIRONOLACTONE
     Indication: PRODUCT USED FOR UNKNOWN INDICATION
     Dosage: 50 MILLIGRAM, QD
     Dates: start: 20190104, end: 20190120
  44. ALBUMIN [Concomitant]
     Active Substance: ALBUMIN HUMAN
     Dosage: 100 UNK, QD
     Dates: start: 20190212, end: 20190212
  45. APREPITANT. [Concomitant]
     Active Substance: APREPITANT
     Indication: PRODUCT USED FOR UNKNOWN INDICATION
     Dosage: 125 MILLIGRAM, QD
     Dates: start: 20181024, end: 20181024
  46. APREPITANT. [Concomitant]
     Active Substance: APREPITANT
     Dosage: 125 MILLIGRAM, QD
     Dates: start: 20190130, end: 20190130
  47. APREPITANT. [Concomitant]
     Active Substance: APREPITANT
     Dosage: 125 MILLIGRAM, QD
     Dates: start: 20181204, end: 20181204
  48. FUROSEMIDE. [Concomitant]
     Active Substance: FUROSEMIDE
     Indication: PRODUCT USED FOR UNKNOWN INDICATION
     Dosage: 40 MILLIGRAM, QD
     Dates: start: 20190104, end: 20190110
  49. LIDOCAINE. [Concomitant]
     Active Substance: LIDOCAINE
     Indication: PRODUCT USED FOR UNKNOWN INDICATION
     Dosage: 5.4 UNK, QD
     Dates: start: 20181010, end: 20181010
  50. MEGESTROL [Concomitant]
     Active Substance: MEGESTROL
     Dosage: 10 UNK, QD
     Dates: start: 20190101, end: 20190122
  51. METOCLOPRAMIDE. [Concomitant]
     Active Substance: METOCLOPRAMIDE
     Dosage: 5 MILLIGRAM, QD
     Dates: start: 20181030, end: 20181104
  52. PACLITAXEL. [Concomitant]
     Active Substance: PACLITAXEL
     Dosage: 100 MILLIGRAM, QD
     Dates: start: 20181016, end: 20181016
  53. PARACETAMOL [Concomitant]
     Active Substance: ACETAMINOPHEN
     Dosage: 650 MILLIGRAM, QD
     Dates: start: 20181002, end: 20181005
  54. PARACETAMOL [Concomitant]
     Active Substance: ACETAMINOPHEN
     Dosage: 650 MILLIGRAM, QD
     Dates: start: 20181030, end: 20181102
  55. RANITIDINE. [Concomitant]
     Active Substance: RANITIDINE
     Indication: PRODUCT USED FOR UNKNOWN INDICATION
     Dosage: 75 MILLIGRAM, QD
     Dates: start: 20180611
  56. TAPENTADOL [Concomitant]
     Active Substance: TAPENTADOL
     Dosage: 100 MILLIGRAM, QD
     Dates: start: 20190122
  57. APREPITANT. [Concomitant]
     Active Substance: APREPITANT
     Dosage: 80 MILLIGRAM, QD
     Dates: start: 20181031, end: 20181101
  58. APREPITANT. [Concomitant]
     Active Substance: APREPITANT
     Dosage: 80 MILLIGRAM, QD
     Dates: start: 20181205, end: 20181206
  59. BENZYDAMINE [Concomitant]
     Active Substance: BENZYDAMINE
     Indication: PRODUCT USED FOR UNKNOWN INDICATION
     Dosage: 15 UNK, QD
     Dates: start: 20180803, end: 20181016
  60. BROMHEXINE [Concomitant]
     Active Substance: BROMHEXINE
     Indication: PRODUCT USED FOR UNKNOWN INDICATION
     Dosage: 8 MILLIGRAM, QD
     Dates: start: 20181113, end: 20181127
  61. CEFOTAXIME [Concomitant]
     Active Substance: CEFOTAXIME SODIUM
     Indication: PRODUCT USED FOR UNKNOWN INDICATION
     Dosage: 4 UNK, QD
     Dates: start: 20190218, end: 20190218
  62. FAT EMULSION NOS [Concomitant]
     Active Substance: EGG PHOSPHOLIPIDS\SAFFLOWER OIL\SOYBEAN OIL
     Indication: PRODUCT USED FOR UNKNOWN INDICATION
     Dosage: 500 UNK, QD
     Dates: start: 20190206, end: 20190206
  63. FENTANYL. [Concomitant]
     Active Substance: FENTANYL
     Indication: PRODUCT USED FOR UNKNOWN INDICATION
     Dosage: 100 UNK, QD
     Dates: start: 20181120, end: 20190114
  64. FENTANYL. [Concomitant]
     Active Substance: FENTANYL
     Dosage: 300 UNK, QD
     Dates: start: 20190122, end: 20190122
  65. GRANISETRON [Concomitant]
     Active Substance: GRANISETRON
     Indication: PRODUCT USED FOR UNKNOWN INDICATION
     Dosage: 68.6 MILLIGRAM
     Dates: start: 20190108, end: 20190114
  66. LACTULOSE. [Concomitant]
     Active Substance: LACTULOSE
     Indication: PRODUCT USED FOR UNKNOWN INDICATION
     Dosage: 30 UNK, QD
     Dates: start: 20190115, end: 20190115
  67. METOCLOPRAMIDE. [Concomitant]
     Active Substance: METOCLOPRAMIDE
     Dosage: 5 MILLIGRAM, QD
     Dates: start: 20190208, end: 20190212
  68. MORPHINE [Concomitant]
     Active Substance: MORPHINE
     Dosage: 5 MILLIGRAM, QD
     Dates: start: 20190218, end: 20190219
  69. PACLITAXEL. [Concomitant]
     Active Substance: PACLITAXEL
     Dosage: 90 MILLIGRAM, QD
     Dates: start: 20181218, end: 20181218
  70. PARACETAMOL [Concomitant]
     Active Substance: ACETAMINOPHEN
     Indication: PRODUCT USED FOR UNKNOWN INDICATION
     Dosage: 650 MILLIGRAM, QD
     Dates: start: 20180918, end: 20180921
  71. PETHIDINE [Concomitant]
     Active Substance: MEPERIDINE
     Dosage: 25 MILLIGRAM, QD
     Dates: start: 20190218, end: 20190218
  72. TRIAMCINOLONE [Concomitant]
     Active Substance: TRIAMCINOLONE
     Indication: PRODUCT USED FOR UNKNOWN INDICATION
     Dosage: 40 MILLIGRAM, QD
     Dates: start: 20181113, end: 20181113
  73. AZITHROMYCIN ANHYDROUS. [Concomitant]
     Active Substance: AZITHROMYCIN ANHYDROUS
     Indication: PRODUCT USED FOR UNKNOWN INDICATION
     Dosage: 500 MILLIGRAM, QD
     Dates: start: 20181114, end: 20181116
  74. EBASTINE [Concomitant]
     Active Substance: EBASTINE
     Indication: PRODUCT USED FOR UNKNOWN INDICATION
     Dosage: 10 MILLIGRAM, QD
     Dates: start: 20190108, end: 20190214
  75. FENTANYL. [Concomitant]
     Active Substance: FENTANYL
     Dosage: 300 UNK, QD
     Dates: start: 20181113, end: 20081120
  76. GRANISETRON [Concomitant]
     Active Substance: GRANISETRON
     Dosage: 68.6 MILLIGRAM
     Dates: start: 20190129, end: 20190204
  77. LIDOCAINE. [Concomitant]
     Active Substance: LIDOCAINE
     Dosage: 1.8 UNK, QD
     Dates: start: 20181113, end: 20181113
  78. MAGNESIUM HYDROXIDE. [Concomitant]
     Active Substance: MAGNESIUM HYDROXIDE
     Indication: PRODUCT USED FOR UNKNOWN INDICATION
     Dosage: 250 MILLIGRAM, QD
     Dates: start: 20080720, end: 20190219
  79. MEGESTROL [Concomitant]
     Active Substance: MEGESTROL
     Indication: PRODUCT USED FOR UNKNOWN INDICATION
     Dosage: 10 UNK, QD
     Dates: start: 20180720, end: 20181030
  80. METOCLOPRAMIDE. [Concomitant]
     Active Substance: METOCLOPRAMIDE
     Indication: PRODUCT USED FOR UNKNOWN INDICATION
     Dosage: 5 MILLIGRAM, QD
     Dates: start: 20181024, end: 20181028
  81. METOCLOPRAMIDE. [Concomitant]
     Active Substance: METOCLOPRAMIDE
     Dosage: 20 MILLIGRAM, QD
     Dates: start: 20190207, end: 20190207
  82. NYSTATIN. [Concomitant]
     Active Substance: NYSTATIN
     Indication: PRODUCT USED FOR UNKNOWN INDICATION
     Dosage: 4 UNK, QD
     Dates: start: 20180803, end: 20181016
  83. PACLITAXEL. [Concomitant]
     Active Substance: PACLITAXEL
     Dosage: 100 MILLIGRAM, QD
     Dates: start: 20181120, end: 20181120
  84. PACLITAXEL. [Concomitant]
     Active Substance: PACLITAXEL
     Dosage: 90 MILLIGRAM, QD
     Dates: start: 20181204, end: 20181204
  85. PARACETAMOL [Concomitant]
     Active Substance: ACETAMINOPHEN
     Dosage: 650 MILLIGRAM, QD
     Dates: start: 20181016, end: 20181019
  86. TRAMADOL. [Concomitant]
     Active Substance: TRAMADOL
     Indication: PRODUCT USED FOR UNKNOWN INDICATION
     Dosage: 50 MILLIGRAM, QD
     Dates: start: 20190115, end: 20190115
  87. ALPRAZOLAM. [Concomitant]
     Active Substance: ALPRAZOLAM
     Indication: PRODUCT USED FOR UNKNOWN INDICATION
     Dosage: 0.125 MILLIGRAM, QD
     Dates: start: 20190208, end: 20190218
  88. APREPITANT. [Concomitant]
     Active Substance: APREPITANT
     Dosage: 80 MILLIGRAM, QD
     Dates: start: 20181121, end: 20181122
  89. BENZYDAMINE [Concomitant]
     Active Substance: BENZYDAMINE
     Dosage: 15 UNK, QD
     Dates: start: 20181023, end: 20181228
  90. CHLORHEXIDINE [Concomitant]
     Active Substance: CHLORHEXIDINE
     Indication: PRODUCT USED FOR UNKNOWN INDICATION
     Dosage: 15 UNK, QD
     Dates: start: 20181010, end: 20181010
  91. DEXAMETHASONE. [Concomitant]
     Active Substance: DEXAMETHASONE
     Dosage: UNK
     Dates: start: 20181109, end: 20181109
  92. LACTULOSE. [Concomitant]
     Active Substance: LACTULOSE
     Dosage: 15 UNK, QD
     Dates: start: 20190122, end: 20190206
  93. NYSTATIN. [Concomitant]
     Active Substance: NYSTATIN
     Dosage: 4 UNK, QD
     Dates: start: 20181023, end: 20181030
  94. ONDANSETRON [Concomitant]
     Active Substance: ONDANSETRON
     Indication: PRODUCT USED FOR UNKNOWN INDICATION
     Dosage: 8 MILLIGRAM, QD
     Dates: start: 20190130, end: 20190201
  95. PARACETAMOL [Concomitant]
     Active Substance: ACETAMINOPHEN
     Dosage: 650 MILLIGRAM, QD
     Dates: start: 20181113, end: 20181115
  96. PARACETAMOL [Concomitant]
     Active Substance: ACETAMINOPHEN
     Dosage: 650 MILLIGRAM, QD
     Dates: start: 20181204, end: 20181208
  97. PETHIDINE [Concomitant]
     Active Substance: MEPERIDINE
     Indication: PRODUCT USED FOR UNKNOWN INDICATION
     Dosage: 25 MILLIGRAM, QD
     Dates: start: 20190115, end: 20190115
  98. RAMUCIRUMAB [Concomitant]
     Active Substance: RAMUCIRUMAB
     Dosage: 388 MILLIGRAM, QD
     Dates: start: 20181002, end: 20181002
  99. RAMUCIRUMAB [Concomitant]
     Active Substance: RAMUCIRUMAB
     Dosage: 388 MILLIGRAM, QD
     Dates: start: 20181030, end: 20181030
  100. RAMUCIRUMAB [Concomitant]
     Active Substance: RAMUCIRUMAB
     Dosage: 388 MILLIGRAM, QD
     Dates: start: 20181218, end: 20181218

REACTIONS (1)
  - Ascites [Recovered/Resolved]

NARRATIVE: CASE EVENT DATE: 20190218
